FAERS Safety Report 16788071 (Version 2)
Quarter: 2019Q3

REPORT INFORMATION
  Report Type: Spontaneous
  Country: JP (occurrence: JP)
  Receive Date: 20190909
  Receipt Date: 20190930
  Transmission Date: 20191005
  Serious: Yes (Death, Hospitalization, Other)
  Sender: FDA-Public Use
  Company Number: PHHY2019JP208103

PATIENT
  Age: 61 Year
  Sex: Male

DRUGS (1)
  1. PREDNISOLONE. [Suspect]
     Active Substance: PREDNISOLONE
     Indication: CHRONIC GRAFT VERSUS HOST DISEASE
     Dosage: 1 MG/KG, UNK
     Route: 065

REACTIONS (10)
  - Alanine aminotransferase increased [Fatal]
  - Varicella zoster virus infection [Fatal]
  - Product use in unapproved indication [Unknown]
  - Aspartate aminotransferase increased [Fatal]
  - Disseminated intravascular coagulation [Unknown]
  - Condition aggravated [Fatal]
  - Acute respiratory failure [Fatal]
  - Altered state of consciousness [Unknown]
  - Hepatic function abnormal [Unknown]
  - Acute hepatic failure [Fatal]
